FAERS Safety Report 13813690 (Version 2)
Quarter: 2017Q3

REPORT INFORMATION
  Report Type: Report from Study
  Country: US (occurrence: US)
  Receive Date: 20170731
  Receipt Date: 20170804
  Transmission Date: 20171127
  Serious: No
  Sender: FDA-Public Use
  Company Number: US-AMGEN-USASL2017113401

PATIENT
  Age: 26 Year
  Sex: Female

DRUGS (1)
  1. ENBREL [Suspect]
     Active Substance: ETANERCEPT
     Indication: PSORIATIC ARTHROPATHY
     Dosage: 50 MG, QWK
     Route: 058
     Dates: start: 201707

REACTIONS (6)
  - Erythema [Unknown]
  - Injection site bruising [Unknown]
  - Injection site erythema [Unknown]
  - Swelling [Unknown]
  - Contusion [Unknown]
  - Injection site swelling [Unknown]

NARRATIVE: CASE EVENT DATE: 201707
